FAERS Safety Report 16821489 (Version 1)
Quarter: 2019Q3

REPORT INFORMATION
  Report Type: Spontaneous
  Country: US (occurrence: US)
  Receive Date: 20190726
  Receipt Date: 20190726
  Transmission Date: 20191005
  Serious: No
  Sender: FDA-Public Use
  Company Number: None

PATIENT
  Age: 49 Year
  Sex: Male

DRUGS (1)
  1. ULTOMIRIS [Suspect]
     Active Substance: RAVULIZUMAB-CWVZ
     Indication: PAROXYSMAL NOCTURNAL HAEMOGLOBINURIA
     Dosage: ?          OTHER FREQUENCY:EVERY 12 WEEKS;?
     Route: 042
     Dates: start: 20190621

REACTIONS (1)
  - Haemolysis [None]

NARRATIVE: CASE EVENT DATE: 20190717
